FAERS Safety Report 6568817-5 (Version None)
Quarter: 2010Q1

REPORT INFORMATION
  Report Type: 
  Country: None (occurrence: None)
  Receive Date: 20100201
  Receipt Date: 20100201
  Transmission Date: 20100710
  Serious: No
  Sender: FDA-Public Use
  Company Number: None

PATIENT
  Sex: Female
  Weight: 133.8111 kg

DRUGS (2)
  1. SAVELLA [Suspect]
     Indication: FIBROMYALGIA
     Dosage: 25 MG QD PO
     Route: 048
     Dates: start: 20090901, end: 20090921
  2. SAVELLA [Suspect]
     Indication: FIBROMYALGIA
     Dosage: 50 MG QD PO
     Route: 048
     Dates: start: 20090701, end: 20090731

REACTIONS (6)
  - HEADACHE [None]
  - IMPAIRED WORK ABILITY [None]
  - INSOMNIA [None]
  - MOVEMENT DISORDER [None]
  - RESTLESS LEGS SYNDROME [None]
  - RESTLESSNESS [None]
